FAERS Safety Report 9888113 (Version 1)
Quarter: 2014Q1

REPORT INFORMATION
  Report Type: Spontaneous
  Country: US (occurrence: US)
  Receive Date: 20140211
  Receipt Date: 20140211
  Transmission Date: 20141002
  Serious: No
  Sender: FDA-Public Use
  Company Number: US-PFIZER INC-2014033834

PATIENT
  Age: 76 Year
  Sex: Female
  Weight: 84.35 kg

DRUGS (1)
  1. BOSULIF [Suspect]
     Dosage: 400 MG (FOUR 100MG TABLETS), 1X/DAY
     Route: 048
     Dates: start: 20140121

REACTIONS (5)
  - Fluid retention [Unknown]
  - Skin striae [Unknown]
  - Weight decreased [Unknown]
  - Weight increased [Unknown]
  - Fatigue [Unknown]
